FAERS Safety Report 8004824-3 (Version None)
Quarter: 2011Q4

REPORT INFORMATION
  Report Type: 
  Country: None (occurrence: None)
  Receive Date: 20111223
  Receipt Date: 20111215
  Transmission Date: 20120403
  Serious: Yes (Hospitalization)
  Sender: FDA-Public Use
  Company Number: US-BRISTOL-MYERS SQUIBB COMPANY-16296188

PATIENT
  Age: 65 Year
  Sex: Male

DRUGS (4)
  1. DILTIAZEM HCL [Concomitant]
  2. COREG [Concomitant]
  3. METOPROLOL [Concomitant]
     Indication: HYPERTENSION
     Route: 042
  4. AVAPRO [Suspect]
     Indication: HYPERTENSION

REACTIONS (1)
  - THYROID DISORDER [None]
